FAERS Safety Report 9684148 (Version 2)
Quarter: 2013Q4

REPORT INFORMATION
  Report Type: Spontaneous
  Country: US (occurrence: US)
  Receive Date: 20131112
  Receipt Date: 20131212
  Transmission Date: 20140711
  Serious: No
  Sender: FDA-Public Use
  Company Number: US-009507513-1311USA003881

PATIENT
  Age: 65 Year
  Sex: Female
  Weight: 108.84 kg

DRUGS (8)
  1. OXYTROL FOR WOMEN [Suspect]
     Indication: URINARY INCONTINENCE
     Dosage: 1 DF, Q4D
     Route: 062
     Dates: start: 2013, end: 201311
  2. METFORMIN [Concomitant]
     Indication: DIABETES MELLITUS
     Dosage: UNK, UNKNOWN
  3. SIMVASTATIN [Concomitant]
     Indication: BLOOD CHOLESTEROL
     Dosage: UNK, UNKNOWN
  4. LEVOTHYROXINE SODIUM [Concomitant]
     Indication: THYROID DISORDER
     Dosage: UNK, UNKNOWN
  5. IRBESARTAN [Concomitant]
     Indication: HYPERTENSION
     Dosage: UNK, UNKNOWN
  6. PHENYTOIN SODIUM [Concomitant]
     Indication: NARCOLEPSY
     Dosage: UNK, UNKNOWN
  7. METOLAZONE [Concomitant]
     Indication: FLUID RETENTION
     Dosage: UNK, UNKNOWN
  8. NUVIGIL [Concomitant]
     Indication: NARCOLEPSY
     Dosage: UNK, UNKNOWN

REACTIONS (3)
  - Blister [Recovered/Resolved]
  - Pruritus [Recovered/Resolved]
  - Incorrect route of drug administration [Unknown]
